FAERS Safety Report 6417041-5 (Version None)
Quarter: 2009Q4

REPORT INFORMATION
  Report Type: 
  Country: None (occurrence: None)
  Receive Date: 20091026
  Receipt Date: 20091020
  Transmission Date: 20100525
  Serious: Yes (Death)
  Sender: FDA-Public Use
  Company Number: 2009SP031502

PATIENT
  Age: 68 Year
  Sex: Male

DRUGS (1)
  1. TEMODAL [Suspect]
     Indication: METASTASIS
     Dosage: PO
     Route: 048
     Dates: start: 20090731, end: 20090804

REACTIONS (9)
  - ACUTE RESPIRATORY DISTRESS SYNDROME [None]
  - EPISTAXIS [None]
  - GENERAL PHYSICAL CONDITION ABNORMAL [None]
  - HAEMOGLOBIN DECREASED [None]
  - MELAENA [None]
  - NEUTROPENIC SEPSIS [None]
  - PANCYTOPENIA [None]
  - SYSTEMIC INFLAMMATORY RESPONSE SYNDROME [None]
  - TRANSFUSION-RELATED ACUTE LUNG INJURY [None]
